FAERS Safety Report 7243267-7 (Version None)
Quarter: 2011Q1

REPORT INFORMATION
  Report Type: 
  Country: None (occurrence: None)
  Receive Date: 20110118
  Receipt Date: 20110105
  Transmission Date: 20110831
  Serious: No
  Sender: FDA-Public Use
  Company Number: 2010SP065780

PATIENT
  Age: 59 Year
  Sex: Female
  Weight: 51.7101 kg

DRUGS (3)
  1. ZEGERID [Suspect]
     Indication: DYSPEPSIA
     Dosage: 20 MG;QD;PO
     Route: 048
     Dates: start: 20101119, end: 20101127
  2. MULTIVITAMIN [Concomitant]
  3. ASPIRIN [Concomitant]

REACTIONS (4)
  - ABDOMINAL PAIN UPPER [None]
  - DISCOMFORT [None]
  - OESOPHAGEAL PAIN [None]
  - VOMITING [None]
